FAERS Safety Report 9285085 (Version 2)
Quarter: 2013Q3

REPORT INFORMATION
  Report Type: Spontaneous
  Country: US (occurrence: US)
  Receive Date: 20130513
  Receipt Date: 20130705
  Transmission Date: 20140515
  Serious: No
  Sender: FDA-Public Use
  Company Number: US-JNJFOC-20130404587

PATIENT
  Sex: Female
  Weight: 85.73 kg

DRUGS (5)
  1. INVEGA SUSTENNA [Suspect]
     Indication: SCHIZOPHRENIA
     Route: 030
     Dates: start: 20130402
  2. INVEGA SUSTENNA [Suspect]
     Indication: SCHIZOPHRENIA
     Route: 030
     Dates: start: 20130430
  3. INVEGA SUSTENNA [Suspect]
     Indication: SCHIZOPHRENIA
     Route: 030
     Dates: start: 20130226
  4. INVEGA SUSTENNA [Suspect]
     Indication: SCHIZOPHRENIA
     Route: 030
     Dates: start: 20130305
  5. TRAZADOL [Concomitant]
     Indication: SLEEP DISORDER
     Dosage: 100-200 MG AT HOURS OF SLEEP AS NEEDED
     Route: 065
     Dates: start: 20130130

REACTIONS (2)
  - Musculoskeletal stiffness [Unknown]
  - Sinusitis [Unknown]
